FAERS Safety Report 9550505 (Version 1)
Quarter: 2013Q3

REPORT INFORMATION
  Report Type: Spontaneous
  Country: US (occurrence: US)
  Receive Date: 20130924
  Receipt Date: 20130924
  Transmission Date: 20140515
  Serious: No
  Sender: FDA-Public Use
  Company Number: US-SANOFI-AVENTIS-2013SA025645

PATIENT
  Age: 55 Year
  Sex: Female
  Weight: 50.8 kg

DRUGS (7)
  1. AUBAGIO [Suspect]
     Indication: MULTIPLE SCLEROSIS
     Route: 048
     Dates: start: 20130302
  2. AUBAGIO [Suspect]
     Indication: MULTIPLE SCLEROSIS
     Route: 048
     Dates: start: 20130302
  3. AVONEX [Concomitant]
     Indication: MULTIPLE SCLEROSIS
  4. TYSABRI [Concomitant]
     Indication: MULTIPLE SCLEROSIS
     Route: 065
  5. VALACICLOVIR [Concomitant]
     Indication: HERPES VIRUS INFECTION
     Dates: start: 200908
  6. DETROL [Concomitant]
     Indication: BLADDER DISORDER
     Dates: start: 2009
  7. CELEBREX [Concomitant]
     Indication: ARTHRALGIA

REACTIONS (10)
  - Malaise [Not Recovered/Not Resolved]
  - Headache [Recovering/Resolving]
  - Hangover [Recovered/Resolved]
  - Fatigue [Not Recovered/Not Resolved]
  - Nausea [Unknown]
  - Alopecia [Not Recovered/Not Resolved]
  - Paraesthesia [Not Recovered/Not Resolved]
  - Hypoaesthesia [Not Recovered/Not Resolved]
  - Weight decreased [Not Recovered/Not Resolved]
  - Drug ineffective [Unknown]
